FAERS Safety Report 7111088-1 (Version None)
Quarter: 2010Q4

REPORT INFORMATION
  Report Type: 
  Country: None (occurrence: None)
  Receive Date: 20101118
  Receipt Date: 20101108
  Transmission Date: 20110411
  Serious: Yes (Hospitalization)
  Sender: FDA-Public Use
  Company Number: JP-JNJFOC-20101104664

PATIENT
  Age: 73 Year
  Sex: Female
  Weight: 47 kg

DRUGS (19)
  1. REMICADE [Suspect]
     Indication: CROHN'S DISEASE
     Route: 042
  2. REMICADE [Suspect]
     Route: 042
  3. REMICADE [Suspect]
     Route: 042
  4. REMICADE [Suspect]
     Route: 042
  5. REMICADE [Suspect]
     Route: 042
  6. REMICADE [Suspect]
     Route: 042
  7. REMICADE [Suspect]
     Route: 042
  8. REMICADE [Suspect]
     Route: 042
  9. FERROUS CITRATE [Concomitant]
     Indication: IRON DEFICIENCY ANAEMIA
  10. PENTASA [Concomitant]
     Indication: CROHN'S DISEASE
     Route: 048
  11. PREDNISOLONE [Concomitant]
     Indication: CROHN'S DISEASE
     Route: 048
  12. ANTIHISTAMINES [Concomitant]
     Indication: PROPHYLAXIS
     Dosage: ADMINISTERED ON ALL INFUSION DATES THROUGH 27-MAY-2010
  13. ACETAMINOPHEN [Concomitant]
     Indication: PROPHYLAXIS
     Dosage: ADMINISTERED ON ALL INFUSION DATES THROUGH 27-MAY-2010
  14. STEROIDS NOS [Concomitant]
     Indication: PROPHYLAXIS
     Dosage: ADMINISTERED ON ALL INFUSION DATES THROUGH 27-MAY-2010
  15. 8-HOUR BAYER [Concomitant]
     Route: 048
  16. BONALON [Concomitant]
     Indication: OSTEONECROSIS
     Route: 048
  17. PARIET [Concomitant]
     Indication: PROPHYLAXIS
     Route: 048
  18. CELECOXIB [Concomitant]
     Indication: TEMPORAL ARTERITIS
     Route: 048
  19. LAXOBERON [Concomitant]
     Indication: PROPHYLAXIS
     Route: 048

REACTIONS (1)
  - PERITONEAL NEOPLASM [None]
